FAERS Safety Report 5854163-1 (Version None)
Quarter: 2008Q3

REPORT INFORMATION
  Report Type: 
  Country: None (occurrence: None)
  Receive Date: 20080822
  Receipt Date: 20080813
  Transmission Date: 20090109
  Serious: Yes (Hospitalization)
  Sender: FDA-Public Use
  Company Number: US-ELI_LILLY_AND_COMPANY-US200711002612

PATIENT
  Sex: Male
  Weight: 95.238 kg

DRUGS (1)
  1. ZYPREXA [Suspect]
     Dosage: 100 MG, UNK
     Dates: start: 20040101

REACTIONS (4)
  - ADVERSE EVENT [None]
  - HYPERGLYCAEMIA [None]
  - OVERDOSE [None]
  - TYPE 2 DIABETES MELLITUS [None]
